FAERS Safety Report 12143517 (Version 1)
Quarter: 2016Q1

REPORT INFORMATION
  Report Type: Spontaneous
  Country: US (occurrence: US)
  Receive Date: 20160304
  Receipt Date: 20160304
  Transmission Date: 20160526
  Serious: No
  Sender: FDA-Public Use
  Company Number: US-JNJFOC-20160120184

PATIENT
  Age: 54 Year
  Sex: Female

DRUGS (2)
  1. WOMENS ROGAINE UNSCENTED [Suspect]
     Active Substance: MINOXIDIL
     Route: 061
  2. WOMENS ROGAINE UNSCENTED [Suspect]
     Active Substance: MINOXIDIL
     Indication: ALOPECIA
     Dosage: HALF CAPFUL ONCE DAILY
     Route: 061
     Dates: start: 20151226

REACTIONS (4)
  - Wrong technique in product usage process [Recovering/Resolving]
  - Rash pruritic [Recovering/Resolving]
  - Alopecia [Recovering/Resolving]
  - Drug administered at inappropriate site [Recovering/Resolving]

NARRATIVE: CASE EVENT DATE: 20160121
